FAERS Safety Report 10510592 (Version 1)
Quarter: 2014Q3

REPORT INFORMATION
  Report Type: Spontaneous
  Country: US (occurrence: None)
  Receive Date: 20140915
  Receipt Date: 20140915
  Transmission Date: 20150326
  Serious: Yes (Hospitalization, Other)
  Sender: FDA-Public Use
  Company Number: JPI-P-034201

PATIENT
  Age: 51 Year
  Sex: Female
  Weight: 70.9 kg

DRUGS (5)
  1. ALPRAZOLAM. [Concomitant]
     Active Substance: ALPRAZOLAM
  2. XYREM [Suspect]
     Active Substance: SODIUM OXYBATE
     Indication: NARCOLEPSY
     Route: 048
     Dates: start: 200504, end: 2005
  3. KLONOPIN [Concomitant]
     Active Substance: CLONAZEPAM
  4. XYREM [Suspect]
     Active Substance: SODIUM OXYBATE
     Indication: SOMNOLENCE
     Route: 048
     Dates: start: 200504, end: 2005
  5. MIRTAZAPINE. [Concomitant]
     Active Substance: MIRTAZAPINE

REACTIONS (3)
  - Generalised anxiety disorder [None]
  - Condition aggravated [None]
  - Major depression [None]

NARRATIVE: CASE EVENT DATE: 2009
